FAERS Safety Report 22660897 (Version 1)
Quarter: 2023Q2

REPORT INFORMATION
  Report Type: Spontaneous
  Country: FR (occurrence: FR)
  Receive Date: 20230630
  Receipt Date: 20230630
  Transmission Date: 20230721
  Serious: Yes (Hospitalization, Other)
  Sender: FDA-Public Use
  Company Number: FR-AFSSAPS-MA2023001198

PATIENT
  Age: 92 Year
  Sex: Female

DRUGS (1)
  1. ERTAPENEM [Suspect]
     Active Substance: ERTAPENEM
     Indication: Erysipelas
     Dosage: UNK
     Route: 040
     Dates: start: 202209

REACTIONS (2)
  - Diarrhoea [Recovered/Resolved]
  - Dehydration [Recovered/Resolved]

NARRATIVE: CASE EVENT DATE: 20220901
